FAERS Safety Report 18740226 (Version 1)
Quarter: 2021Q1

REPORT INFORMATION
  Report Type: Spontaneous
  Country: US (occurrence: US)
  Receive Date: 20210114
  Receipt Date: 20210114
  Transmission Date: 20210419
  Serious: Yes (Other)
  Sender: FDA-Public Use
  Company Number: US-PFIZER INC-2021018718

PATIENT
  Age: 71 Year
  Sex: Female
  Weight: 81.65 kg

DRUGS (1)
  1. XELJANZ XR [Suspect]
     Active Substance: TOFACITINIB CITRATE
     Indication: ARTHRITIS
     Dosage: 11 MG, DAILY
     Route: 048
     Dates: start: 20201228

REACTIONS (14)
  - Enlarged uvula [Unknown]
  - Oropharyngeal pain [Unknown]
  - Nasal disorder [Unknown]
  - Sleep disorder [Unknown]
  - Tremor [Unknown]
  - Pharyngeal swelling [Unknown]
  - Throat tightness [Unknown]
  - Eye irritation [Not Recovered/Not Resolved]
  - Dysphonia [Unknown]
  - Weight decreased [Unknown]
  - Anaphylactic reaction [Unknown]
  - Condition aggravated [Not Recovered/Not Resolved]
  - Visual impairment [Not Recovered/Not Resolved]
  - Off label use [Unknown]

NARRATIVE: CASE EVENT DATE: 20201228
